FAERS Safety Report 7951665-9 (Version None)
Quarter: 2011Q4

REPORT INFORMATION
  Report Type: 
  Country: None (occurrence: None)
  Receive Date: 20111201
  Receipt Date: 20111122
  Transmission Date: 20120403
  Serious: Yes (Hospitalization)
  Sender: FDA-Public Use
  Company Number: CA-CELGENEUS-028-C5013-11110754

PATIENT
  Sex: Female
  Weight: 49 kg

DRUGS (21)
  1. ACETAMINOPHEN [Concomitant]
     Indication: PROPHYLAXIS
     Dosage: 325 MILLIGRAM
     Route: 048
     Dates: start: 20000101
  2. LENALIDOMIDE [Suspect]
     Dosage: 2.5 MILLIGRAM
     Route: 048
     Dates: start: 20111004
  3. LENALIDOMIDE [Suspect]
     Dosage: 2.5 MILLIGRAM
     Route: 048
     Dates: start: 20111101, end: 20111104
  4. ASPIRIN [Concomitant]
     Dosage: 80 MILLIGRAM
     Route: 048
     Dates: start: 20010101
  5. ACETAMINOPHEN [Concomitant]
     Indication: HEADACHE
     Dosage: 650 MILLIGRAM
     Route: 048
     Dates: start: 20000101
  6. BRICANYL [Concomitant]
     Indication: PROPHYLAXIS
     Dosage: 500 MICROGRAM
     Route: 048
     Dates: start: 20110902
  7. IMODIUM [Concomitant]
     Dosage: 2 MILLIGRAM
     Route: 048
     Dates: start: 19800101
  8. ZANTAC [Concomitant]
     Dosage: 75 MILLIGRAM
     Route: 048
     Dates: start: 20090101
  9. NACL [Concomitant]
     Dosage: 80CC
     Route: 041
     Dates: start: 20111101
  10. ATIVAN [Concomitant]
     Dosage: .5 MILLIGRAM
     Dates: start: 20111108
  11. NORITATE [Concomitant]
     Dosage: 1 PERCENT
     Route: 062
     Dates: start: 20100507
  12. VITAMIN D [Concomitant]
     Indication: OSTEOPOROSIS
     Dosage: 4000 IU (INTERNATIONAL UNIT)
     Route: 048
     Dates: start: 19530101
  13. PULMICORT [Concomitant]
     Indication: PROPHYLAXIS
     Dosage: 200 MICROGRAM
     Route: 048
     Dates: start: 20110902
  14. ACETYLCYSTEINE [Concomitant]
     Indication: PROPHYLAXIS
     Dosage: 600 MILLIGRAM
     Route: 048
     Dates: start: 20110920, end: 20110921
  15. CIL NET [Concomitant]
     Indication: BLEPHARITIS
     Route: 062
     Dates: start: 20111101
  16. LENALIDOMIDE [Suspect]
     Dosage: 2.5 MILLIGRAM
     Route: 048
     Dates: start: 20111108
  17. CALCIUM [Concomitant]
     Indication: OSTEOPOROSIS
     Dosage: 500 MILLIGRAM
     Route: 048
     Dates: start: 19530101, end: 20111104
  18. COLACE [Concomitant]
     Indication: CONSTIPATION
     Dosage: 100 MILLIGRAM
     Route: 048
     Dates: start: 20110331
  19. ATIVAN [Concomitant]
     Indication: INSOMNIA
     Dosage: .5 MILLIGRAM
     Dates: start: 20110902
  20. ALLOPURINOL [Concomitant]
     Indication: PROPHYLAXIS
     Dosage: 300 MILLIGRAM
     Route: 048
     Dates: start: 20110927
  21. PREDNISONE [Concomitant]
     Indication: PROPHYLAXIS
     Dosage: 50 MILLIGRAM
     Route: 048
     Dates: start: 20110920, end: 20110921

REACTIONS (2)
  - RENAL FAILURE ACUTE [None]
  - HYPERCALCAEMIA [None]
